FAERS Safety Report 10934395 (Version 2)
Quarter: 2015Q1

REPORT INFORMATION
  Report Type: Spontaneous
  Country: FR (occurrence: FR)
  Receive Date: 20150320
  Receipt Date: 20150327
  Transmission Date: 20150721
  Serious: Yes (Death)
  Sender: FDA-Public Use
  Company Number: FR-SA-2015SA033777

PATIENT
  Age: 69 Year
  Sex: Male

DRUGS (3)
  1. ENDOXAN [Suspect]
     Active Substance: CYCLOPHOSPHAMIDE
     Indication: CHRONIC LYMPHOCYTIC LEUKAEMIA
     Route: 048
     Dates: start: 20110224, end: 20110810
  2. MABTHERA [Suspect]
     Active Substance: RITUXIMAB
     Indication: CHRONIC LYMPHOCYTIC LEUKAEMIA
     Route: 042
     Dates: start: 20110224, end: 20110810
  3. FLUDARA [Suspect]
     Active Substance: FLUDARABINE PHOSPHATE
     Indication: CHRONIC LYMPHOCYTIC LEUKAEMIA
     Route: 048
     Dates: start: 20110224, end: 20110810

REACTIONS (5)
  - Organ failure [Fatal]
  - Pneumocystis jirovecii infection [Fatal]
  - Staphylococcal infection [Fatal]
  - Myelodysplastic syndrome [Fatal]
  - Aplasia [Fatal]

NARRATIVE: CASE EVENT DATE: 2014
